FAERS Safety Report 9474816 (Version 1)
Quarter: 2013Q3

REPORT INFORMATION
  Report Type: Spontaneous
  Country: US (occurrence: US)
  Receive Date: 20130823
  Receipt Date: 20130823
  Transmission Date: 20140515
  Serious: Yes (Hospitalization)
  Sender: FDA-Public Use
  Company Number: PHHY2013US088570

PATIENT
  Age: 42 Year
  Sex: Female

DRUGS (2)
  1. CISPLATIN [Suspect]
     Indication: ADENOID CYSTIC CARCINOMA
     Route: 013
  2. DOXORUBICIN [Suspect]
     Indication: ADENOID CYSTIC CARCINOMA
     Route: 042

REACTIONS (3)
  - Ischaemic stroke [Unknown]
  - Intermittent claudication [Unknown]
  - Facial paresis [Unknown]
